FAERS Safety Report 7575868 (Version 2)
Quarter: 2019Q4

REPORT INFORMATION
  Report Type: Spontaneous
  Country: GB (occurrence: GB)
  Receive Date: 20100908
  Receipt Date: 20191203
  Transmission Date: 20200122
  Serious: Yes (Other)
  Sender: FDA-Public Use
  Company Number: GB-TEVA-247306ISR

PATIENT
  Age: 22 Year
  Sex: Male

DRUGS (1)
  1. METFORMIN [Suspect]
     Active Substance: METFORMIN HYDROCHLORIDE
     Indication: DIABETES MELLITUS
     Route: 048
     Dates: start: 20100618, end: 20100803

REACTIONS (3)
  - Mood swings [Recovering/Resolving]
  - Aggression [Recovering/Resolving]
  - Intentional self-injury [Recovering/Resolving]
